FAERS Safety Report 12899439 (Version 3)
Quarter: 2017Q1

REPORT INFORMATION
  Report Type: Spontaneous
  Country: IR (occurrence: IR)
  Receive Date: 20161101
  Receipt Date: 20170221
  Transmission Date: 20170428
  Serious: Yes (Death, Life-Threatening, Hospitalization, Other)
  Sender: FDA-Public Use
  Company Number: IR-JNJFOC-20161026241

PATIENT
  Age: 17 Year
  Sex: Female

DRUGS (2)
  1. TRAMADOL HYDROCHLORIDE. [Suspect]
     Active Substance: TRAMADOL HYDROCHLORIDE
     Indication: SUICIDE ATTEMPT
     Dosage: 50 TABLETS OF 200 G
     Route: 048
     Dates: start: 201603
  2. DIAZEPAM. [Interacting]
     Active Substance: DIAZEPAM
     Indication: GENERALISED TONIC-CLONIC SEIZURE
     Route: 042
     Dates: start: 201603

REACTIONS (11)
  - Cardiac arrest [Fatal]
  - Intentional overdose [Fatal]
  - Unresponsive to stimuli [Unknown]
  - Pupil fixed [Not Recovered/Not Resolved]
  - Toxicity to various agents [Fatal]
  - Areflexia [Unknown]
  - Hypotonia [Not Recovered/Not Resolved]
  - Drug interaction [Unknown]
  - Cardio-respiratory arrest [Recovering/Resolving]
  - Completed suicide [Fatal]
  - Generalised tonic-clonic seizure [Recovering/Resolving]

NARRATIVE: CASE EVENT DATE: 201603
